FAERS Safety Report 7855069-9 (Version None)
Quarter: 2011Q4

REPORT INFORMATION
  Report Type: 
  Country: None (occurrence: None)
  Receive Date: 20111026
  Receipt Date: 20111011
  Transmission Date: 20120403
  Serious: Yes (Other)
  Sender: FDA-Public Use
  Company Number: KR-PFIZER INC-2011242808

PATIENT
  Age: 65 Year
  Sex: Male

DRUGS (1)
  1. VIAGRA [Suspect]
     Dosage: 50 MG, UNK
     Route: 048
     Dates: start: 20111001

REACTIONS (4)
  - VISUAL ACUITY REDUCED [None]
  - HEADACHE [None]
  - ERYTHEMA [None]
  - NASAL OBSTRUCTION [None]
